FAERS Safety Report 9443942 (Version 2)
Quarter: 2013Q3

REPORT INFORMATION
  Report Type: Spontaneous
  Country: US (occurrence: US)
  Receive Date: 20130807
  Receipt Date: 20130820
  Transmission Date: 20140515
  Serious: Yes (Death, Hospitalization, Other)
  Sender: FDA-Public Use
  Company Number: US-AMGEN-USASP2013054776

PATIENT
  Age: 57 Year
  Sex: Female
  Weight: 116.55 kg

DRUGS (7)
  1. PROLIA [Suspect]
     Indication: PRODUCT USED FOR UNKNOWN INDICATION
     Dosage: UNK , Q6MO
     Route: 058
     Dates: start: 20120806
  2. PROLIA [Suspect]
     Dosage: UNK, Q6MO
     Route: 058
     Dates: start: 20130212
  3. SYMBICORT [Concomitant]
     Indication: CHRONIC OBSTRUCTIVE PULMONARY DISEASE
     Dosage: 1 MG, BID
     Dates: start: 20100405
  4. PRAMIPEXOLE [Concomitant]
     Indication: RESTLESS LEGS SYNDROME
     Dosage: 0.25 MUG, BID
     Route: 048
     Dates: start: 20070823
  5. ZOLOFT [Concomitant]
     Indication: DEPRESSION
     Dosage: 100 MG, QD
     Route: 048
     Dates: start: 20070823
  6. OXAPROZIN [Concomitant]
     Dosage: 600 G, BID
     Route: 048
     Dates: start: 20110510
  7. ALBUTEROL                          /00139501/ [Concomitant]
     Indication: CHRONIC OBSTRUCTIVE PULMONARY DISEASE
     Dosage: 2 PUFF, AS NECESSARY
     Dates: start: 200705

REACTIONS (4)
  - Chronic obstructive pulmonary disease [Fatal]
  - Cardiac arrest [Unknown]
  - Oedema peripheral [Unknown]
  - Dyspnoea [Unknown]
